FAERS Safety Report 4814116-9 (Version None)
Quarter: 2005Q4

REPORT INFORMATION
  Report Type: 
  Country: None (occurrence: None)
  Receive Date: 20051028
  Receipt Date: 20050701
  Transmission Date: 20060501
  Serious: No
  Sender: FDA-Public Use
  Company Number: US-GLAXOSMITHKLINE-A0564844A

PATIENT
  Age: 63 Year
  Sex: Male
  Weight: 71.8 kg

DRUGS (5)
  1. ADVAIR DISKUS 100/50 [Suspect]
     Indication: ASTHMA
     Dosage: 1PUFF TWICE PER DAY
     Route: 055
  2. TOPROL-XL [Concomitant]
     Dosage: 25MG PER DAY
  3. PREDNISONE [Concomitant]
     Dosage: 10MG PER DAY
  4. PROTONIX [Concomitant]
     Dosage: 40MG PER DAY
  5. COUMADIN [Concomitant]
     Dosage: 75MG PER DAY

REACTIONS (2)
  - FATIGUE [None]
  - HEART RATE INCREASED [None]
